FAERS Safety Report 20543543 (Version 1)
Quarter: 2022Q1

REPORT INFORMATION
  Report Type: Spontaneous
  Country: None (occurrence: GB)
  Receive Date: 20220302
  Receipt Date: 20220302
  Transmission Date: 20220423
  Serious: Yes (Hospitalization, Other)
  Sender: FDA-Public Use
  Company Number: GB-Ascend Therapeutics US, LLC-2126400

PATIENT
  Sex: Female

DRUGS (4)
  1. ESTROGEL [Suspect]
     Active Substance: ESTRADIOL
     Indication: Product used for unknown indication
     Route: 065
     Dates: start: 202201
  2. ESTROGEL [Suspect]
     Active Substance: ESTRADIOL
  3. ESTROGEL [Suspect]
     Active Substance: ESTRADIOL
     Route: 065
     Dates: start: 202201
  4. ESTRADIOL [Suspect]
     Active Substance: ESTRADIOL
     Route: 065
     Dates: start: 2022

REACTIONS (12)
  - Suicidal ideation [Unknown]
  - Anxiety [Unknown]
  - Night sweats [Unknown]
  - Feeling abnormal [Unknown]
  - Burning sensation [Unknown]
  - Insomnia [Unknown]
  - Diarrhoea [Unknown]
  - Tinnitus [Unknown]
  - Thinking abnormal [Unknown]
  - Fatigue [Unknown]
  - Depression [Unknown]
  - Drug ineffective [None]

NARRATIVE: CASE EVENT DATE: 20220101
